FAERS Safety Report 7199406-X (Version None)
Quarter: 2010Q4

REPORT INFORMATION
  Report Type: 
  Country: None (occurrence: None)
  Receive Date: 20101215
  Receipt Date: 20101209
  Transmission Date: 20110411
  Serious: Yes (Other)
  Sender: FDA-Public Use
  Company Number: WAES 1012DEU00039

PATIENT

DRUGS (1)
  1. CANCIDAS [Suspect]
     Indication: ASPERGILLOSIS
     Dosage: 200 MG IV
     Route: 042

REACTIONS (1)
  - GAMMA-GLUTAMYLTRANSFERASE INCREASED [None]
